FAERS Safety Report 7965881-3 (Version None)
Quarter: 2011Q4

REPORT INFORMATION
  Report Type: 
  Country: None (occurrence: None)
  Receive Date: 20111208
  Receipt Date: 20111130
  Transmission Date: 20120403
  Serious: Yes (Other)
  Sender: FDA-Public Use
  Company Number: US-VIIV HEALTHCARE LIMITED-A0946066A

PATIENT
  Age: 36 Year
  Sex: Female

DRUGS (4)
  1. TRUVADA [Suspect]
     Indication: ANTIVIRAL TREATMENT
     Dosage: 1TAB PER DAY
     Route: 048
     Dates: start: 20110115
  2. RETROVIR [Suspect]
     Indication: ANTIVIRAL TREATMENT
     Dosage: 600MG PER DAY
     Route: 048
     Dates: start: 20110115
  3. RETROVIR [Suspect]
     Route: 042
     Dates: start: 20110729, end: 20110729
  4. KALETRA [Suspect]
     Indication: ANTIVIRAL TREATMENT
     Dosage: 4TAB PER DAY
     Route: 048
     Dates: start: 20110115

REACTIONS (3)
  - STILLBIRTH [None]
  - MATERNAL EXPOSURE DURING PREGNANCY [None]
  - PREMATURE RUPTURE OF MEMBRANES [None]
